FAERS Safety Report 14020108 (Version 1)
Quarter: 2017Q3

REPORT INFORMATION
  Report Type: Spontaneous
  Country: CZ (occurrence: CZ)
  Receive Date: 20170928
  Receipt Date: 20170928
  Transmission Date: 20171128
  Serious: Yes (Life-Threatening, Other)
  Sender: FDA-Public Use
  Company Number: PHHY2017CZ141685

PATIENT
  Age: 27 Year
  Sex: Male

DRUGS (4)
  1. STOPEX [Suspect]
     Active Substance: DEXTROMETHORPHAN HYDROBROMIDE
     Indication: PRODUCT USED FOR UNKNOWN INDICATION
     Dosage: 30 MG, 24 TABLETS
     Route: 065
     Dates: end: 20170624
  2. PIRACETAM [Suspect]
     Active Substance: PIRACETAM
     Indication: PRODUCT USED FOR UNKNOWN INDICATION
     Dosage: 1200 MG, 3 TABLETS
     Route: 065
     Dates: end: 20170624
  3. LEVOCETIRIZINE [Suspect]
     Active Substance: LEVOCETIRIZINE
     Indication: PRODUCT USED FOR UNKNOWN INDICATION
     Dosage: 3 TOTAL
     Route: 065
     Dates: end: 20170624
  4. BETMIGA [Suspect]
     Active Substance: MIRABEGRON
     Indication: PRODUCT USED FOR UNKNOWN INDICATION
     Dosage: 50 MG, UNK
     Route: 065
     Dates: end: 20170624

REACTIONS (2)
  - Intentional product misuse [Unknown]
  - Overdose [Unknown]

NARRATIVE: CASE EVENT DATE: 20170624
